FAERS Safety Report 10640488 (Version 1)
Quarter: 2014Q4

REPORT INFORMATION
  Report Type: Spontaneous
  Country: US (occurrence: None)
  Receive Date: 20141205
  Receipt Date: 20141205
  Transmission Date: 20150529
  Serious: Yes (Other)
  Sender: FDA-Public Use
  Company Number: None

PATIENT
  Age: 31 Year
  Sex: Female

DRUGS (1)
  1. MAKENA [Suspect]
     Active Substance: HYDROXYPROGESTERONE CAPROATE
     Indication: HIGH RISK PREGNANCY
     Route: 030
     Dates: start: 20141016, end: 20141125

REACTIONS (4)
  - Injection site swelling [None]
  - Injection site pain [None]
  - Pruritus generalised [None]
  - Injection site erythema [None]

NARRATIVE: CASE EVENT DATE: 20141125
